FAERS Safety Report 9151061 (Version 1)
Quarter: 2013Q1

REPORT INFORMATION
  Report Type: Spontaneous
  Country: US (occurrence: None)
  Receive Date: 20130201
  Receipt Date: 20130201
  Transmission Date: 20140127
  Serious: Yes (Life-Threatening)
  Sender: FDA-Public Use
  Company Number: FK201300319

PATIENT
  Age: 23 Year
  Sex: Female

DRUGS (2)
  1. METHOTREXATE [Suspect]
     Dates: start: 20121008, end: 20121217
  2. FOLIC ACID (FOLIC ACID) [Concomitant]

REACTIONS (2)
  - Hyperkalaemia [None]
  - Renal tubular disorder [None]
